FAERS Safety Report 7783204-X (Version None)
Quarter: 2011Q3

REPORT INFORMATION
  Report Type: 
  Country: None (occurrence: None)
  Receive Date: 20110928
  Receipt Date: 20110919
  Transmission Date: 20111222
  Serious: Yes (Hospitalization)
  Sender: FDA-Public Use
  Company Number: US-BAYER-2011-088366

PATIENT
  Sex: Female

DRUGS (2)
  1. YASMIN [Suspect]
     Dosage: UNK
     Dates: start: 20020101, end: 20090101
  2. DROSPIRENONE AND ETHINYL ESTRADIOL [Suspect]
     Dosage: UNK
     Dates: start: 20020101, end: 20090101

REACTIONS (8)
  - ANHEDONIA [None]
  - INJURY [None]
  - DISABILITY [None]
  - GALLBLADDER DISORDER [None]
  - DEFORMITY [None]
  - ANXIETY [None]
  - PANCREATITIS [None]
  - PAIN [None]
